FAERS Safety Report 6202796-5 (Version None)
Quarter: 2009Q2

REPORT INFORMATION
  Report Type: 
  Country: None (occurrence: None)
  Receive Date: 20090526
  Receipt Date: 20070619
  Transmission Date: 20091009
  Serious: Yes (Other)
  Sender: FDA-Public Use
  Company Number: EC-PFIZER INC-2007049805

PATIENT
  Age: 11 Year

DRUGS (1)
  1. GENOTROPIN [Suspect]
     Indication: GROWTH HORMONE DEFICIENCY
     Dosage: 0.9 MG, 1X/DAY
     Route: 058

REACTIONS (2)
  - MUSCLE HAEMORRHAGE [None]
  - PAIN IN EXTREMITY [None]
